FAERS Safety Report 15075020 (Version 2)
Quarter: 2023Q4

REPORT INFORMATION
  Report Type: Spontaneous
  Country: US (occurrence: US)
  Receive Date: 20180627
  Receipt Date: 20231109
  Transmission Date: 20240110
  Serious: Yes (Hospitalization, Other)
  Sender: FDA-Public Use
  Company Number: US-SAOL THERAPEUTICS-2017SAO01528

PATIENT
  Sex: Female
  Weight: 71.5 kg

DRUGS (4)
  1. BACLOFEN [Suspect]
     Active Substance: BACLOFEN
     Indication: Muscle spasticity
     Dosage: 937.9 ?G, \DAY
     Route: 037
     Dates: start: 2008
  2. BACLOFEN [Suspect]
     Active Substance: BACLOFEN
     Indication: Brain injury
     Dosage: 122.2 ?G, \DAY
     Route: 037
  3. BACLOFEN [Suspect]
     Active Substance: BACLOFEN
     Dosage: 1190 ?G, \DAY
     Route: 037
  4. BACLOFEN [Suspect]
     Active Substance: BACLOFEN
     Dosage: 1189.7 ?G, \DAY
     Route: 037

REACTIONS (6)
  - Muscle spasms [Recovered/Resolved]
  - Implant site extravasation [Unknown]
  - Complication associated with device [Recovered/Resolved]
  - Chest pain [Unknown]
  - Device leakage [Recovered/Resolved]
  - Device malfunction [Unknown]

NARRATIVE: CASE EVENT DATE: 20170101
